FAERS Safety Report 8142247-7 (Version None)
Quarter: 2012Q1

REPORT INFORMATION
  Report Type: 
  Country: None (occurrence: None)
  Receive Date: 20120103
  Receipt Date: 20111017
  Transmission Date: 20120608
  Serious: No
  Sender: FDA-Public Use
  Company Number: AE-2011-002400

PATIENT
  Age: 59 Year
  Sex: Male
  Weight: 68.0396 kg

DRUGS (6)
  1. FISH OIL (FISH OIL) [Concomitant]
  2. DIOVAN [Concomitant]
  3. PEGASYS [Concomitant]
  4. RIBAPAK (RIBAVIRIN) [Concomitant]
  5. CELEXA (CITALOPRAM HYDROBROMIDE) [Concomitant]
  6. INCIVEK [Suspect]
     Dosage: 2250 MG (750 MG, 1 IN 8 HR) , ORAL
     Route: 048
     Dates: start: 20111003

REACTIONS (3)
  - FATIGUE [None]
  - DISTURBANCE IN ATTENTION [None]
  - RASH [None]
